FAERS Safety Report 8521193-0 (Version None)
Quarter: 2012Q3

REPORT INFORMATION
  Report Type: 
  Country: None (occurrence: None)
  Receive Date: 20120719
  Receipt Date: 20120713
  Transmission Date: 20120928
  Serious: Yes (Other)
  Sender: FDA-Public Use
  Company Number: US-FRI-1000036757

PATIENT
  Age: 31 Year
  Sex: Female

DRUGS (3)
  1. AMBIEN [Concomitant]
  2. VIIBRYD [Suspect]
     Indication: MAJOR DEPRESSION
     Dosage: 40 MG
     Dates: start: 20120502, end: 20120625
  3. TRILEPTAL [Concomitant]
     Dosage: 1200 MG
     Route: 048

REACTIONS (3)
  - CONVULSION [None]
  - INSOMNIA [None]
  - ALOPECIA [None]
